FAERS Safety Report 5277096-0 (Version None)
Quarter: 2007Q1

REPORT INFORMATION
  Report Type: 
  Country: None (occurrence: None)
  Receive Date: 20070327
  Receipt Date: 20070321
  Transmission Date: 20070707
  Serious: Yes (Other)
  Sender: FDA-Public Use
  Company Number: CA-GLAXOSMITHKLINE-A0644526A

PATIENT
  Sex: Female

DRUGS (1)
  1. FLOVENT [Suspect]
     Route: 055

REACTIONS (3)
  - MALAISE [None]
  - PHARMACEUTICAL PRODUCT COMPLAINT [None]
  - PNEUMONITIS [None]
